FAERS Safety Report 4456194-5 (Version None)
Quarter: 2004Q3

REPORT INFORMATION
  Report Type: 
  Country: None (occurrence: None)
  Receive Date: 20040920
  Receipt Date: 20040914
  Transmission Date: 20050211
  Serious: Yes (Hospitalization)
  Sender: FDA-Public Use
  Company Number: 200412640GDS

PATIENT
  Age: 65 Year
  Sex: Female
  Weight: 52 kg

DRUGS (2)
  1. ASPIRIN [Suspect]
     Indication: ANTICOAGULANT THERAPY
     Dosage: 100 MG, TOTAL DAILY, ORAL
     Route: 048
  2. WARFARIN POTASSIUM [Suspect]
     Indication: ANTICOAGULANT THERAPY
     Dosage: 3.5 MG, TOTAL DAILY, ORAL
     Route: 048

REACTIONS (8)
  - CHEST PAIN [None]
  - GASTROINTESTINAL MUCOSAL DISORDER [None]
  - HAEMATOMA [None]
  - HAEMORRHAGIC DIATHESIS [None]
  - OESOPHAGEAL DISORDER [None]
  - OESOPHAGEAL HAEMORRHAGE [None]
  - OESOPHAGEAL ULCER [None]
  - WHITE BLOOD CELL COUNT INCREASED [None]
